FAERS Safety Report 18848352 (Version 1)
Quarter: 2021Q1

REPORT INFORMATION
  Report Type: Report from Study
  Country: US (occurrence: US)
  Receive Date: 20210204
  Receipt Date: 20210204
  Transmission Date: 20210419
  Serious: Yes (Hospitalization, Other)
  Sender: FDA-Public Use
  Company Number: US-009507513-2101USA009978

PATIENT
  Sex: Male

DRUGS (1)
  1. KEYTRUDA [Suspect]
     Active Substance: PEMBROLIZUMAB
     Indication: SKIN CANCER
     Dosage: 200 MG EVERY 21 DAYS
     Dates: end: 202001

REACTIONS (4)
  - Radiotherapy [Unknown]
  - Terminal state [Unknown]
  - Dementia [Unknown]
  - Mental status changes [Unknown]
